FAERS Safety Report 6921290-7 (Version None)
Quarter: 2010Q3

REPORT INFORMATION
  Report Type: 
  Country: None (occurrence: None)
  Receive Date: 20100812
  Receipt Date: 20100804
  Transmission Date: 20110219
  Serious: Yes (Other)
  Sender: FDA-Public Use
  Company Number: B0659552A

PATIENT
  Sex: Male
  Weight: 88 kg

DRUGS (6)
  1. AVANDIA [Suspect]
  2. NOVONORM [Concomitant]
  3. CRESTOR [Concomitant]
  4. OLMESARTAN MEDOXOMIL [Concomitant]
     Indication: HYPERTENSION
  5. AMARYL [Concomitant]
  6. ZANIDIP [Concomitant]

REACTIONS (1)
  - ATRIOVENTRICULAR BLOCK FIRST DEGREE [None]
